FAERS Safety Report 12928473 (Version 1)
Quarter: 2016Q4

REPORT INFORMATION
  Report Type: Spontaneous
  Country: US (occurrence: US)
  Receive Date: 20161110
  Receipt Date: 20161110
  Transmission Date: 20170207
  Serious: No
  Sender: FDA-Public Use
  Company Number: US-TAKEDA-2016MPI009501

PATIENT
  Sex: Male
  Weight: 90.7 kg

DRUGS (2)
  1. ZETIA [Concomitant]
     Active Substance: EZETIMIBE
     Dosage: UNK
     Route: 065
  2. VELCADE [Suspect]
     Active Substance: BORTEZOMIB
     Indication: PLASMA CELL MYELOMA
     Dosage: UNK
     Route: 058
     Dates: start: 201604, end: 201606

REACTIONS (4)
  - Abdominal pain upper [Unknown]
  - Injection site infection [Unknown]
  - Muscular weakness [Unknown]
  - Neuropathy peripheral [Unknown]
